FAERS Safety Report 7670914-8 (Version None)
Quarter: 2011Q3

REPORT INFORMATION
  Report Type: 
  Country: None (occurrence: None)
  Receive Date: 20110805
  Receipt Date: 20110805
  Transmission Date: 20111222
  Serious: Yes (Death, Hospitalization)
  Sender: FDA-Public Use
  Company Number: None

PATIENT
  Sex: Female
  Weight: 106.7 kg

DRUGS (2)
  1. ETOPOSIDE [Suspect]
     Dosage: 315 MG
     Dates: end: 20110720
  2. CARBOPLATIN [Suspect]
     Dosage: 630 MG
     Dates: end: 20110718

REACTIONS (4)
  - UNRESPONSIVE TO STIMULI [None]
  - URINARY TRACT INFECTION [None]
  - SEPSIS [None]
  - RESPIRATORY TRACT INFECTION [None]
